FAERS Safety Report 15581013 (Version 7)
Quarter: 2020Q3

REPORT INFORMATION
  Report Type: Spontaneous
  Country: US (occurrence: US)
  Receive Date: 20181102
  Receipt Date: 20200824
  Transmission Date: 20201102
  Serious: No
  Sender: FDA-Public Use
  Company Number: US-ACTELION-A-NJ2018-177900

PATIENT
  Age: 30 Year
  Sex: Male
  Weight: 49.89 kg

DRUGS (7)
  1. LETAIRIS [Concomitant]
     Active Substance: AMBRISENTAN
  2. VELETRI [Suspect]
     Active Substance: EPOPROSTENOL
     Dosage: 41.7 NG/KG, PER MIN
     Route: 042
  3. VELETRI [Suspect]
     Active Substance: EPOPROSTENOL
     Indication: PULMONARY ARTERIAL HYPERTENSION
     Dosage: 37 NG/KG, PER MIN
     Route: 042
  4. VELETRI [Suspect]
     Active Substance: EPOPROSTENOL
     Dosage: 39.5 NG/KG, PER MIN
     Route: 042
  5. ADCIRCA [Concomitant]
     Active Substance: TADALAFIL
  6. VELETRI [Suspect]
     Active Substance: EPOPROSTENOL
     Dosage: 42 NG/KG, PER MIN
     Route: 042
  7. AMBRISENTAN [Concomitant]
     Active Substance: AMBRISENTAN

REACTIONS (14)
  - Device issue [Unknown]
  - Anaemia [Unknown]
  - Dyspnoea exertional [Not Recovered/Not Resolved]
  - Catheter management [Unknown]
  - Fatigue [Unknown]
  - Complication associated with device [Unknown]
  - Palpitations [Unknown]
  - Myalgia [Not Recovered/Not Resolved]
  - Dyspnoea [Unknown]
  - Weight gain poor [Unknown]
  - Disease progression [Unknown]
  - Pain in jaw [Unknown]
  - Catheter placement [Unknown]
  - Diarrhoea [Unknown]

NARRATIVE: CASE EVENT DATE: 201809
